FAERS Safety Report 20826692 (Version 1)
Quarter: 2022Q2

REPORT INFORMATION
  Report Type: Spontaneous
  Country: US (occurrence: US)
  Receive Date: 20220513
  Receipt Date: 20220513
  Transmission Date: 20220720
  Serious: No
  Sender: FDA-Public Use
  Company Number: US-PFIZER INC-202200584935

PATIENT
  Age: 64 Year
  Sex: Female
  Weight: 102.06 kg

DRUGS (5)
  1. BOSULIF [Suspect]
     Active Substance: BOSUTINIB MONOHYDRATE
     Indication: Chronic myeloid leukaemia
     Dosage: 400 MG, DAILY (ONE TABLET DAILY BY MOUTH)
     Route: 048
  2. OXYCODONE [Suspect]
     Active Substance: OXYCODONE
     Indication: Piriformis syndrome
     Dosage: TAKING FOR AT LEAST A YEAR OR MORE
  3. QUETIAPINE FUMARATE [Concomitant]
     Active Substance: QUETIAPINE FUMARATE
     Indication: Sleep disorder
     Dosage: ONCE NIGHTLY, TAKING FOR 5 YEARS
  4. PAROXETINE [Concomitant]
     Active Substance: PAROXETINE
     Indication: Sleep disorder
     Dosage: ONCE NIGHTLY, TAKING FOR 7-8 YEARS
  5. TIZANIDINE [Concomitant]
     Active Substance: TIZANIDINE
     Indication: Muscle relaxant therapy
     Dosage: ONE TABLET MAYBE TWICE DAILY, STARTED AROUND 1 YEAR AGO

REACTIONS (1)
  - Vomiting [Unknown]
